FAERS Safety Report 8153908-8 (Version None)
Quarter: 2012Q1

REPORT INFORMATION
  Report Type: 
  Country: None (occurrence: None)
  Receive Date: 20120221
  Receipt Date: 20120210
  Transmission Date: 20120608
  Serious: Yes (Other)
  Sender: FDA-Public Use
  Company Number: US-ROCHE-1039471

PATIENT
  Age: 87 Year
  Sex: Male

DRUGS (5)
  1. RANIBIZUMAB [Suspect]
     Route: 050
     Dates: start: 20100801
  2. OFLOXACIN [Concomitant]
  3. PROPARACAINE HCL [Concomitant]
  4. POVIDONE IODINE [Concomitant]
  5. RANIBIZUMAB [Suspect]
     Indication: AGE-RELATED MACULAR DEGENERATION
     Route: 050
     Dates: start: 20060801

REACTIONS (1)
  - PYOGENIC GRANULOMA [None]
